FAERS Safety Report 9077727 (Version 1)
Quarter: 2013Q1

REPORT INFORMATION
  Report Type: Spontaneous
  Country: US (occurrence: US)
  Receive Date: 20130130
  Receipt Date: 20130130
  Transmission Date: 20140127
  Serious: No
  Sender: FDA-Public Use
  Company Number: US-ABBOTT-12P-163-0952021-00

PATIENT
  Age: 25 None
  Sex: Female
  Weight: 48.12 kg

DRUGS (5)
  1. HUMIRA 40 MG/0.8 ML PEN [Suspect]
     Indication: CROHN^S DISEASE
     Route: 058
     Dates: start: 2007
  2. 6-MP [Concomitant]
     Indication: PRODUCT USED FOR UNKNOWN INDICATION
  3. ZOLOFT [Concomitant]
     Indication: ANXIETY
  4. BC [Concomitant]
     Indication: PRODUCT USED FOR UNKNOWN INDICATION
  5. CONCERTA [Concomitant]
     Indication: ATTENTION DEFICIT/HYPERACTIVITY DISORDER

REACTIONS (5)
  - Device malfunction [None]
  - Incorrect dose administered [None]
  - Injection site vesicles [None]
  - Injection site pain [None]
  - Injection site pain [None]
